FAERS Safety Report 6505140-9 (Version None)
Quarter: 2009Q4

REPORT INFORMATION
  Report Type: 
  Country: None (occurrence: None)
  Receive Date: 20091201
  Receipt Date: 20090727
  Transmission Date: 20100525
  Serious: Yes (Hospitalization)
  Sender: FDA-Public Use
  Company Number: 2008-173126-NL

PATIENT
  Age: 29 Year
  Sex: Female
  Weight: 118 kg

DRUGS (2)
  1. NUVARING [Suspect]
     Indication: CONTRACEPTION
     Dates: start: 20050623, end: 20050926
  2. LORATADINE [Concomitant]

REACTIONS (1)
  - PULMONARY EMBOLISM [None]
